FAERS Safety Report 9748814 (Version 2)
Quarter: 2013Q4

REPORT INFORMATION
  Report Type: Spontaneous
  Country: US (occurrence: US)
  Receive Date: 20131212
  Receipt Date: 20131212
  Transmission Date: 20140711
  Serious: No
  Sender: FDA-Public Use
  Company Number: US-INCYTE CORPORATION-2013IN001701

PATIENT
  Age: 78 Year
  Sex: Male

DRUGS (13)
  1. JAKAFI [Suspect]
     Indication: ESSENTIAL THROMBOCYTHAEMIA
     Dosage: 5 MG, QD
     Route: 048
     Dates: start: 201306, end: 2013
  2. JAKAFI [Suspect]
     Dosage: 5 MG, BID
     Route: 048
     Dates: start: 2013, end: 20130823
  3. HYDROXYUREA [Suspect]
     Indication: ESSENTIAL THROMBOCYTHAEMIA
     Dosage: NOT SPECIFIED
     Dates: end: 201307
  4. ISOSORBIDE [Concomitant]
  5. FUROSEMIDE [Concomitant]
  6. AMIODARONE [Concomitant]
  7. ANAGRELIDE [Concomitant]
  8. HYDRALAZINE [Concomitant]
  9. ALLOPURINOL [Concomitant]
  10. FERROUS SULFATE [Concomitant]
  11. METOPROLOL [Concomitant]
  12. HYDROCODONE [Concomitant]
  13. OMEPRAZOLE [Concomitant]

REACTIONS (2)
  - Rash [Unknown]
  - Platelet count increased [Unknown]
